FAERS Safety Report 9066003 (Version 6)
Quarter: 2013Q4

REPORT INFORMATION
  Report Type: Report from Study
  Country: KR (occurrence: KR)
  Receive Date: 20130214
  Receipt Date: 20131211
  Transmission Date: 20140711
  Serious: Yes (Death, Hospitalization)
  Sender: FDA-Public Use
  Company Number: KR-BAYER-2012-135804

PATIENT
  Age: 52 Year
  Sex: Male
  Weight: 71 kg

DRUGS (17)
  1. NEXAVAR [Suspect]
     Indication: HEPATOCELLULAR CARCINOMA
     Dosage: 400 MG DAILY
     Route: 048
     Dates: start: 20121015, end: 20121015
  2. NEXAVAR [Suspect]
     Indication: HEPATOCELLULAR CARCINOMA
     Dosage: DAILY DOSE 800 MG
     Route: 048
     Dates: start: 20121016, end: 20121020
  3. NEXAVAR [Suspect]
     Indication: HEPATOCELLULAR CARCINOMA
     Dosage: DAILY DOSE 600 MG
     Route: 048
     Dates: start: 20121026, end: 20130131
  4. NEXAVAR [Suspect]
     Indication: HEPATOCELLULAR CARCINOMA
     Dosage: 400 MG DAILY
     Route: 048
     Dates: start: 20130208, end: 20130213
  5. NEXAVAR [Suspect]
     Indication: HEPATOCELLULAR CARCINOMA
     Dosage: 200 MG, QD (IT WAS GIVEN EVERY 3 DAYS)
     Route: 048
     Dates: start: 20130409, end: 20130409
  6. NEXAVAR [Suspect]
     Indication: HEPATOCELLULAR CARCINOMA
     Dosage: 200 MG, QD (IT WAS GIVEN EVERY 3 DAYS)
     Route: 048
     Dates: start: 20130412, end: 20130412
  7. NEXAVAR [Suspect]
     Indication: HEPATOCELLULAR CARCINOMA
     Dosage: 200 MG, QD (IT WAS GIVEN EVERY 3 DAYS)
     Route: 048
     Dates: start: 20130415, end: 20130415
  8. NEXAVAR [Suspect]
     Indication: HEPATOCELLULAR CARCINOMA
     Dosage: 200 MG, QD (IT WAS GIVEN EVERY 3 DAYS)
     Route: 048
     Dates: start: 20130425, end: 20130425
  9. NEXAVAR [Suspect]
     Indication: HEPATOCELLULAR CARCINOMA
     Dosage: 200 MG, QD  (IT WAS GIVEN EVERY 3 DAYS)
     Route: 048
     Dates: start: 20130428, end: 20130428
  10. NEXAVAR [Suspect]
     Indication: HEPATOCELLULAR CARCINOMA
     Dosage: 200 MG, QD (IT WAS GIVEN EVERY 3 DAYS)
     Route: 048
     Dates: start: 20130501, end: 20130501
  11. NEXAVAR [Suspect]
     Indication: HEPATOCELLULAR CARCINOMA
     Dosage: 200 MG, QD (IT WAS GIVEN EVERY 3 DAYS)
     Route: 048
     Dates: start: 20130504, end: 20130711
  12. VIREAD [Concomitant]
     Dosage: DAILY DOSE 300 MG
     Route: 048
     Dates: start: 20121227, end: 20130417
  13. VIREAD [Concomitant]
     Dosage: 300 MG, QD
     Route: 048
     Dates: start: 20130604, end: 20130710
  14. GODEX [Concomitant]
     Indication: LIVER DISORDER
     Dosage: 3 DF, TID
     Route: 048
     Dates: start: 20121031, end: 20130413
  15. PANTOLOC [Concomitant]
     Dosage: 40 MG, QD
     Route: 048
     Dates: start: 20130524, end: 20130712
  16. ULCERMIN [Concomitant]
     Dosage: 60 MG, QD
     Route: 048
     Dates: start: 20130620, end: 20130703
  17. OXYCODONE [Concomitant]
     Dosage: 5 MG, TID
     Dates: start: 20130630

REACTIONS (13)
  - Liver function test abnormal [Not Recovered/Not Resolved]
  - Abdominal distension [Recovered/Resolved]
  - Diarrhoea [Recovered/Resolved]
  - Decreased appetite [Recovered/Resolved]
  - Asthenia [Recovered/Resolved]
  - Ascites [Recovered/Resolved]
  - Ascites [Recovered/Resolved]
  - Gastrointestinal haemorrhage [Recovered/Resolved]
  - Ascites [Recovered/Resolved]
  - Abdominal discomfort [Recovered/Resolved]
  - Muscular weakness [Recovered/Resolved]
  - Muscular weakness [None]
  - Hepatocellular carcinoma [Fatal]
